FAERS Safety Report 6028723-1 (Version None)
Quarter: 2009Q1

REPORT INFORMATION
  Report Type: 
  Country: None (occurrence: None)
  Receive Date: 20090102
  Receipt Date: 20081219
  Transmission Date: 20090719
  Serious: Yes (Death)
  Sender: FDA-Public Use
  Company Number: 109737

PATIENT
  Age: 64 Year
  Sex: Male

DRUGS (6)
  1. RANITIDINE [Suspect]
     Dosage: ORAL
     Route: 048
  2. CLOZAPINE [Suspect]
     Indication: SCHIZOPHRENIA
     Dosage: ORAL
     Route: 048
     Dates: start: 20010701, end: 20040817
  3. CLOZAPINE [Concomitant]
  4. ALBUTEROL [Concomitant]
  5. VALPROIC ACID [Concomitant]
  6. VALPROIC ACID [Concomitant]

REACTIONS (3)
  - CARDIAC ARREST [None]
  - CIRCULATORY COLLAPSE [None]
  - DRUG INTERACTION [None]
